FAERS Safety Report 21338769 (Version 1)
Quarter: 2022Q3

REPORT INFORMATION
  Report Type: Report from Study
  Country: JP (occurrence: JP)
  Receive Date: 20220915
  Receipt Date: 20220915
  Transmission Date: 20221027
  Serious: Yes (Death)
  Sender: FDA-Public Use
  Company Number: JP-PFIZER INC-PV202200007949

PATIENT

DRUGS (3)
  1. OXALIPLATIN [Suspect]
     Active Substance: OXALIPLATIN
     Indication: Adenocarcinoma gastric
     Dosage: 130 MG/M2, CYCLIC, ON DAY 1 OF  EACH 3-WEEK?CYCLE
     Route: 042
  2. PEMBROLIZUMAB [Suspect]
     Active Substance: PEMBROLIZUMAB
     Indication: Adenocarcinoma gastric
     Dosage: 200 MG, CYCLIC, 30 MIN I.V. INFUSION, ON DAY 1 OF  EACH 3-WEEK?CYCLE
     Route: 042
  3. TS-1 [Suspect]
     Active Substance: GIMERACIL\OTERACIL\TEGAFUR
     Indication: Adenocarcinoma gastric
     Dosage: 2X/DAY, 2?WEEKS OF EACH 3-WEEK?CYCLE
     Route: 048

REACTIONS (1)
  - Cardiac arrest [Fatal]
